FAERS Safety Report 18517664 (Version 1)
Quarter: 2020Q4

REPORT INFORMATION
  Report Type: Spontaneous
  Country: US (occurrence: US)
  Receive Date: 20201118
  Receipt Date: 20201118
  Transmission Date: 20210114
  Serious: Yes (Other)
  Sender: FDA-Public Use
  Company Number: US-REDHILL BIOPHARMA-2020RDH04065

PATIENT
  Age: 41 Year
  Sex: Female
  Weight: 46.26 kg

DRUGS (1)
  1. TALICIA [Suspect]
     Active Substance: AMOXICILLIN\OMEPRAZOLE MAGNESIUM\RIFABUTIN
     Indication: HELICOBACTER INFECTION
     Dosage: 4 CAPSULES, 3X/DAY
     Route: 048
     Dates: start: 20200901, end: 2020

REACTIONS (1)
  - Rash [Not Recovered/Not Resolved]

NARRATIVE: CASE EVENT DATE: 20200901
